FAERS Safety Report 4826872-4 (Version None)
Quarter: 2005Q4

REPORT INFORMATION
  Report Type: 
  Country: None (occurrence: None)
  Receive Date: 20051114
  Receipt Date: 20051109
  Transmission Date: 20060501
  Serious: Yes (Other)
  Sender: FDA-Public Use
  Company Number: GB-BOEHRINGER INGELHEIM PHARMACEUTICALS, INC.-2005-UK-02300UK

PATIENT
  Sex: Female

DRUGS (1)
  1. CATAPRES (0015/5009R) [Suspect]
     Route: 048

REACTIONS (1)
  - CONVULSION [None]
